FAERS Safety Report 17976057 (Version 1)
Quarter: 2020Q3

REPORT INFORMATION
  Report Type: Spontaneous
  Country: DE (occurrence: DE)
  Receive Date: 20200703
  Receipt Date: 20200703
  Transmission Date: 20201103
  Serious: Yes (Hospitalization)
  Sender: FDA-Public Use
  Company Number: DE-TEVA-2020-DE-1791828

PATIENT
  Age: 70 Year
  Sex: Male
  Weight: 78 kg

DRUGS (13)
  1. ATORVASTATIN [Concomitant]
     Active Substance: ATORVASTATIN
     Dosage: 80 MILLIGRAM DAILY;  0?0?1?0
  2. ALLOPURINOL. [Concomitant]
     Active Substance: ALLOPURINOL
     Dosage: .5 DOSAGE FORMS DAILY; 300 MG, 0.5?0?0?0
  3. CANDESARTAN. [Interacting]
     Active Substance: CANDESARTAN
     Dosage: 16 MILLIGRAM DAILY;  1?0?0?0
  4. DULOXETIN [Concomitant]
     Active Substance: DULOXETINE
     Dosage: 120 MILLIGRAM DAILY; 60 MG, 1?0?1?0
  5. CLOPIDOGREL [Interacting]
     Active Substance: CLOPIDOGREL BISULFATE
     Dosage: 75 MILLIGRAM DAILY; 1?0?0?0
  6. NEBIVOLOL. [Concomitant]
     Active Substance: NEBIVOLOL
     Dosage: .5 DOSAGE FORMS DAILY; 5 MG, 0?0?0.5?0
  7. RAMIPRIL. [Suspect]
     Active Substance: RAMIPRIL
     Dosage: 2.5 MILLIGRAM DAILY;  0?0?1?0
  8. INSULIN GLARGIN [Concomitant]
     Active Substance: INSULIN GLARGINE
     Dosage: 300 IE, 0?0?16?0
     Route: 058
  9. BUDESONID [Concomitant]
     Active Substance: BUDESONIDE
     Dosage: 4 DOSAGE FORMS DAILY; 0.2 MG, 2?0?2?0
  10. EISEN (II) [Concomitant]
     Dosage: 50 MILLIGRAM DAILY;  0?0?0?1
  11. ACETYLSALICYLSAEURE [Interacting]
     Active Substance: ASPIRIN
     Dosage: 100 MILLIGRAM DAILY;  0?1?0?0
  12. INSULIN LISPRO [Concomitant]
     Active Substance: INSULIN LISPRO
     Dosage: 300 IE, 8?8?8?0
     Route: 058
  13. NATRIUMHYDROGENCARBONAT [Concomitant]
     Active Substance: SODIUM BICARBONATE
     Dosage: 2 GRAM DAILY; 1?0?1?0

REACTIONS (6)
  - Product monitoring error [Unknown]
  - Renal impairment [Unknown]
  - Anaemia [Unknown]
  - Hyperkalaemia [Unknown]
  - Electrolyte imbalance [Unknown]
  - Labelled drug-drug interaction medication error [Unknown]
